FAERS Safety Report 5793191-1 (Version None)
Quarter: 2008Q2

REPORT INFORMATION
  Report Type: 
  Country: None (occurrence: None)
  Receive Date: 20080626
  Receipt Date: 20080626
  Transmission Date: 20081010
  Serious: Yes (Hospitalization)
  Sender: FDA-Public Use
  Company Number: None

PATIENT
  Sex: Female
  Weight: 90.6 kg

DRUGS (11)
  1. BEVACIZUMAB [Suspect]
     Indication: GLIOBLASTOMA MULTIFORME
     Dosage: 906MG Q 2 WEEKS 4/16,30,5/14,28  IV
     Route: 042
  2. TEMODAR [Suspect]
     Dosage: 145MG 4/14-5/28/08  DAILY PO
     Route: 048
  3. KEPPRA [Concomitant]
  4. NEXIUM [Concomitant]
  5. CALCIUM [Concomitant]
  6. VITAMIN D [Concomitant]
  7. TYLENOL ES [Concomitant]
  8. TUMS [Concomitant]
  9. ATIVAN [Concomitant]
  10. ZOFRAN [Concomitant]
  11. K-DUR [Concomitant]

REACTIONS (1)
  - CONVULSION [None]
